FAERS Safety Report 13461609 (Version 1)
Quarter: 2017Q2

REPORT INFORMATION
  Report Type: Other
  Country: ES (occurrence: ES)
  Receive Date: 20170420
  Receipt Date: 20170420
  Transmission Date: 20170830
  Serious: Yes (Life-Threatening)
  Sender: FDA-Public Use
  Company Number: ES-B. BRAUN MEDICAL INC.-1065565

PATIENT
  Age: 32 Year
  Sex: Female
  Weight: 55 kg

DRUGS (4)
  1. MIDAZOLAM [Concomitant]
     Active Substance: MIDAZOLAM HYDROCHLORIDE
  2. LEVOBUPIVACAINE [Suspect]
     Active Substance: LEVOBUPIVACAINE
     Route: 053
  3. LIDOCAINE. [Suspect]
     Active Substance: LIDOCAINE
     Indication: NERVE BLOCK
     Route: 053
  4. FENTANYL. [Concomitant]
     Active Substance: FENTANYL

REACTIONS (10)
  - Agitation [None]
  - Anaesthetic complication [Recovered/Resolved]
  - Potentiating drug interaction [Recovered/Resolved]
  - Loss of consciousness [None]
  - Hypotension [None]
  - Tachycardia [None]
  - Dysarthria [None]
  - Seizure [None]
  - Tachypnoea [None]
  - Hypertension [None]
